FAERS Safety Report 11473707 (Version 2)
Quarter: 2015Q3

REPORT INFORMATION
  Report Type: Spontaneous
  Country: US (occurrence: US)
  Receive Date: 20150908
  Receipt Date: 20150929
  Transmission Date: 20151125
  Serious: No
  Sender: FDA-Public Use
  Company Number: US-B.I. PHARMACEUTICALS,INC./RIDGEFIELD-2015-BI-47384BP

PATIENT
  Age: 66 Year
  Sex: Female

DRUGS (1)
  1. PRADAXA [Suspect]
     Active Substance: DABIGATRAN ETEXILATE MESYLATE
     Indication: ATRIAL FIBRILLATION
     Dosage: 300 MG
     Route: 048
     Dates: start: 2012

REACTIONS (6)
  - Urinary incontinence [Not Recovered/Not Resolved]
  - Headache [Not Recovered/Not Resolved]
  - Abdominal pain upper [Not Recovered/Not Resolved]
  - Bladder disorder [Not Recovered/Not Resolved]
  - Red blood cell sedimentation rate increased [Not Recovered/Not Resolved]
  - Myalgia [Recovered/Resolved]

NARRATIVE: CASE EVENT DATE: 201502
